FAERS Safety Report 5315861-1 (Version None)
Quarter: 2007Q2

REPORT INFORMATION
  Report Type: 
  Country: None (occurrence: None)
  Receive Date: 20070503
  Receipt Date: 20070425
  Transmission Date: 20071010
  Serious: Yes (Hospitalization)
  Sender: FDA-Public Use
  Company Number: US-JNJFOC-20070405689

PATIENT
  Age: 25 Year
  Sex: Male

DRUGS (3)
  1. INVEGA [Suspect]
     Indication: SCHIZOAFFECTIVE DISORDER
     Route: 048
  2. ENABLEX [Concomitant]
  3. RISPERDAL [Concomitant]
     Indication: SCHIZOAFFECTIVE DISORDER
     Route: 048

REACTIONS (2)
  - AGITATION [None]
  - DELUSION [None]
